FAERS Safety Report 7777536-9 (Version None)
Quarter: 2011Q3

REPORT INFORMATION
  Report Type: 
  Country: None (occurrence: None)
  Receive Date: 20110926
  Receipt Date: 20110919
  Transmission Date: 20111222
  Serious: Yes (Hospitalization)
  Sender: FDA-Public Use
  Company Number: US-TEVA-301432USA

PATIENT
  Age: 64 Year
  Sex: Male

DRUGS (2)
  1. DILTIAZEM [Suspect]
     Dosage: 120 MILLIGRAM;
     Route: 048
  2. DIGOXIN [Concomitant]
     Indication: HEART RATE INCREASED

REACTIONS (1)
  - ILEUS PARALYTIC [None]
